FAERS Safety Report 4920591-1 (Version None)
Quarter: 2006Q1

REPORT INFORMATION
  Report Type: 
  Country: None (occurrence: None)
  Receive Date: 20060223
  Receipt Date: 20060118
  Transmission Date: 20060701
  Serious: Yes (Death)
  Sender: FDA-Public Use
  Company Number: JP-AVENTIS-200610157JP

PATIENT
  Age: 62 Year
  Sex: Male
  Weight: 63 kg

DRUGS (10)
  1. TAXOTERE [Suspect]
     Indication: LUNG ADENOCARCINOMA STAGE IV
     Route: 041
     Dates: start: 20051214, end: 20051214
  2. NEUTROGIN [Suspect]
     Indication: NEUTROPENIA
     Route: 058
     Dates: start: 20051221, end: 20051224
  3. AMARYL [Concomitant]
     Indication: DIABETES MELLITUS
     Route: 048
     Dates: end: 20051227
  4. GASTER [Concomitant]
     Indication: GASTRITIS
     Route: 048
     Dates: end: 20060115
  5. CBDCA [Concomitant]
     Indication: LUNG NEOPLASM MALIGNANT
     Dates: start: 20050914, end: 20051011
  6. CBDCA [Concomitant]
     Dates: start: 20051012, end: 20051115
  7. CBDCA [Concomitant]
     Dates: start: 20051116, end: 20051213
  8. IRINOTECAN HCL [Concomitant]
     Indication: LUNG NEOPLASM MALIGNANT
     Dates: start: 20050914, end: 20051011
  9. IRINOTECAN HCL [Concomitant]
     Dates: start: 20051012, end: 20051115
  10. IRINOTECAN HCL [Concomitant]
     Dates: start: 20051116, end: 20051213

REACTIONS (6)
  - ANOREXIA [None]
  - GENERAL PHYSICAL HEALTH DETERIORATION [None]
  - HEART RATE INCREASED [None]
  - LUNG ADENOCARCINOMA STAGE IV [None]
  - PNEUMONITIS [None]
  - RESPIRATORY FAILURE [None]
